FAERS Safety Report 8516754-9 (Version None)
Quarter: 2012Q3

REPORT INFORMATION
  Report Type: 
  Country: None (occurrence: None)
  Receive Date: 20120706
  Receipt Date: 20120622
  Transmission Date: 20120928
  Serious: Yes (Other)
  Sender: FDA-Public Use
  Company Number: GER/GER/12/0024799

PATIENT
  Age: 28 Year
  Sex: Female
  Weight: 80 kg

DRUGS (8)
  1. OMEPRAZOLE [Suspect]
     Indication: GASTRITIS PROPHYLAXIS
     Dosage: 20 MG, 1 D, ORAL
     Route: 048
  2. FOLSAURE (FOLIC ACID) [Concomitant]
  3. FORTECORTIN 40 MG (DEXAMETHASONE) [Concomitant]
  4. PREDNISONE TAB [Concomitant]
  5. PREDNISONE TAB [Concomitant]
  6. PROTAPHANE (INSULIN HUMAN INJECTION, ISOPHANE) [Concomitant]
  7. RITUXIMAB (RITUXIMAB) [Suspect]
     Indication: IDIOPATHIC THROMBOCYTOPENIC PURPURA
     Dosage: 800 MG, 1 D, INTRAVENOUS (NOT OTHERWISE SPECIFIED)
     Route: 042
  8. INTRATECT (IMMUNOGLOBULIN G HUMAN) [Suspect]
     Indication: IDIOPATHIC THROMBOCYTOPENIC PURPURA
     Dosage: INTRAVENOUS (NOT OTHERWISE SPECIFIED)
     Route: 042
     Dates: start: 20100312, end: 20100314

REACTIONS (6)
  - THROMBOCYTOPENIA [None]
  - MATERNAL EXPOSURE DURING PREGNANCY [None]
  - PREMATURE DELIVERY [None]
  - CAESAREAN SECTION [None]
  - BREECH PRESENTATION [None]
  - GESTATIONAL DIABETES [None]
